FAERS Safety Report 19396820 (Version 1)
Quarter: 2021Q2

REPORT INFORMATION
  Report Type: Spontaneous
  Country: SE (occurrence: SE)
  Receive Date: 20210610
  Receipt Date: 20210610
  Transmission Date: 20210717
  Serious: Yes (Death, Hospitalization, Other)
  Sender: FDA-Public Use
  Company Number: SE-SUN PHARMACEUTICAL INDUSTRIES LTD-2021RR-300142

PATIENT
  Age: 82 Year
  Sex: Male

DRUGS (7)
  1. ATORVASTATIN SUN [Suspect]
     Active Substance: ATORVASTATIN
     Indication: PRODUCT USED FOR UNKNOWN INDICATION
     Dosage: 80 MILLIGRAM, DAILY, 80 MG 1X1
     Route: 048
     Dates: start: 20181224, end: 20210510
  2. NORSPAN 25 MIKROGRAM/TIMME DEPOTPLASTER [Concomitant]
     Indication: PRODUCT USED FOR UNKNOWN INDICATION
     Dosage: 25 MICROGRAMS / HOUR 1 PATCH CHANGE EVERY 7 DAYS (1) DEPOTPLASTER
     Route: 003
     Dates: start: 20210107
  3. VANCOMYCIN ORION [Suspect]
     Active Substance: VANCOMYCIN HYDROCHLORIDE
     Indication: DEVICE RELATED INFECTION
     Dosage: 3000 MILLIGRAM, 1000 MG 1 G X3
     Route: 042
     Dates: start: 20210430, end: 20210505
  4. ALLOPURINOL NORDIC DRUGS [Concomitant]
     Active Substance: ALLOPURINOL
     Indication: PRODUCT USED FOR UNKNOWN INDICATION
     Dosage: 100 MILLIGRAM, DAILY, 100 MG 1X1
     Route: 065
     Dates: start: 20200201, end: 20210510
  5. GABAPENTIN ACTAVIS [Suspect]
     Active Substance: GABAPENTIN
     Indication: PRODUCT USED FOR UNKNOWN INDICATION
     Dosage: 600 MILLIGRAM, DAILY, 300 MG 1X2
     Route: 048
     Dates: start: 20200512, end: 20210509
  6. FUROSEMID TEVA 40 MG TABLETT [Concomitant]
     Indication: PRODUCT USED FOR UNKNOWN INDICATION
     Dosage: 160 MILLIGRAM, DAILY,40 MG 2+2+0+0
     Route: 048
     Dates: start: 20201211, end: 20210510
  7. VANCOMYCIN ORION [Suspect]
     Active Substance: VANCOMYCIN HYDROCHLORIDE
     Indication: ENTEROCOCCAL INFECTION
     Dosage: UNK
     Route: 065

REACTIONS (2)
  - Myoclonus [Unknown]
  - Acute kidney injury [Fatal]

NARRATIVE: CASE EVENT DATE: 202105
